FAERS Safety Report 9656858 (Version 1)
Quarter: 2013Q4

REPORT INFORMATION
  Report Type: Spontaneous
  Country: FR (occurrence: FR)
  Receive Date: 20131030
  Receipt Date: 20131030
  Transmission Date: 20140711
  Serious: Yes (Hospitalization)
  Sender: FDA-Public Use
  Company Number: FR-PFIZER INC-2013305480

PATIENT
  Age: 24 Year
  Sex: Female

DRUGS (17)
  1. ZYVOXID [Suspect]
     Dosage: 600 MG, 2X/DAY
     Dates: start: 20130928
  2. VFEND [Suspect]
     Dosage: 350 MG, DAILY
     Dates: start: 20130829
  3. CANCIDAS [Suspect]
     Dosage: 50 MG, DAILY
     Dates: start: 20130829
  4. TOBRAMYCIN [Concomitant]
     Dosage: UNK
     Dates: start: 20130928
  5. COLISTIN [Concomitant]
     Dosage: UNK
     Dates: start: 20130928
  6. NOZINAN [Concomitant]
     Dosage: UNK
     Dates: start: 20131004
  7. FUROSEMIDE [Concomitant]
     Dosage: UNK
     Dates: start: 20131004
  8. DEROXAT [Concomitant]
     Dosage: UNK
     Dates: start: 20130923
  9. PROPOFOL [Concomitant]
     Dosage: UNK
     Dates: start: 20130928
  10. MIDAZOLAM [Concomitant]
     Dosage: UNK
     Dates: start: 20130802
  11. SOLU-MEDROL [Concomitant]
     Dosage: UNK
     Dates: start: 20130726
  12. ESOMEPRAZOLE [Concomitant]
     Dosage: 40 MG, DAILY
  13. HEPARIN [Concomitant]
     Dosage: UNK
  14. INSULIN [Concomitant]
     Dosage: UNK
  15. NIMBEX [Concomitant]
     Dosage: UNK
     Dates: start: 20130928, end: 20131003
  16. ATARAX [Concomitant]
     Dosage: UNK
     Dates: start: 20130926, end: 20130928
  17. DORIPENEM [Concomitant]
     Dosage: UNK
     Dates: start: 20130928, end: 20131007

REACTIONS (4)
  - Hepatitis acute [Not Recovered/Not Resolved]
  - Cholestasis [Not Recovered/Not Resolved]
  - Cell death [Not Recovered/Not Resolved]
  - Jaundice [Not Recovered/Not Resolved]
